FAERS Safety Report 5714473-5 (Version None)
Quarter: 2008Q2

REPORT INFORMATION
  Report Type: 
  Country: None (occurrence: None)
  Receive Date: 20080421
  Receipt Date: 20080409
  Transmission Date: 20081010
  Serious: Yes (Hospitalization)
  Sender: FDA-Public Use
  Company Number: 2008AL002185

PATIENT
  Age: 40 Year
  Sex: Male

DRUGS (1)
  1. DICLOFENAC SODIUM [Suspect]
     Indication: PERINEAL PAIN
     Dosage: 50 MG; TID;

REACTIONS (6)
  - ABDOMINAL ADHESIONS [None]
  - INTESTINAL PERFORATION [None]
  - INTESTINAL STENOSIS [None]
  - INTESTINAL ULCER [None]
  - POLYP [None]
  - SMALL INTESTINAL OBSTRUCTION [None]
